FAERS Safety Report 20135899 (Version 1)
Quarter: 2021Q4

REPORT INFORMATION
  Report Type: Spontaneous
  Country: JP (occurrence: JP)
  Receive Date: 20211201
  Receipt Date: 20211201
  Transmission Date: 20220304
  Serious: Yes (Other)
  Sender: FDA-Public Use
  Company Number: JP-PFIZER INC-202101630651

PATIENT
  Sex: Female

DRUGS (7)
  1. LYRICA [Suspect]
     Active Substance: PREGABALIN
     Indication: Pain
     Dosage: UNK
     Route: 048
  2. RIMABOTULINUMTOXINB [Suspect]
     Active Substance: RIMABOTULINUMTOXINB
     Indication: Torticollis
     Dosage: AT THE FIRST DOSE OF 5000 UNITS AT 6 SITES
     Dates: start: 20210827
  3. NEUROTROPIN [CYANOCOBALAMIN;LIDOCAINE HYDROCHLORIDE;PYRIDOXINE HYDROCH [Concomitant]
     Dosage: UNK
  4. LOXOPROFEN SODIUM [Concomitant]
     Active Substance: LOXOPROFEN SODIUM
     Dosage: UNK
     Route: 048
  5. LOXOPROFEN [Concomitant]
     Active Substance: LOXOPROFEN
     Dosage: UNK
     Route: 048
  6. CALONAL [Concomitant]
     Active Substance: ACETAMINOPHEN
     Dosage: UNK
     Route: 048
  7. FYCOMPA [Concomitant]
     Active Substance: PERAMPANEL
     Dosage: UNK

REACTIONS (12)
  - Back pain [Not Recovered/Not Resolved]
  - Nausea [Not Recovered/Not Resolved]
  - Neck pain [Not Recovered/Not Resolved]
  - Pain [Not Recovered/Not Resolved]
  - Eye pain [Not Recovered/Not Resolved]
  - Rhinalgia [Not Recovered/Not Resolved]
  - Hypertonia [Not Recovered/Not Resolved]
  - Dyskinesia [Not Recovered/Not Resolved]
  - Headache [Not Recovered/Not Resolved]
  - Discomfort [Not Recovered/Not Resolved]
  - Muscle strain [Unknown]
  - Inadequate analgesia [Unknown]
